FAERS Safety Report 12341380 (Version 1)
Quarter: 2016Q2

REPORT INFORMATION
  Report Type: Spontaneous
  Country: TW (occurrence: TW)
  Receive Date: 20160506
  Receipt Date: 20160506
  Transmission Date: 20160815
  Serious: Yes (Other)
  Sender: FDA-Public Use
  Company Number: TW-BAYER-2016-086223

PATIENT
  Age: 80 Year
  Sex: Male

DRUGS (2)
  1. SORAFENIB (RAF KINASE INHIBITOR) [Suspect]
     Active Substance: SORAFENIB
     Indication: HEPATOCELLULAR CARCINOMA
     Dosage: 200 MG, BID
     Dates: start: 201509
  2. SORAFENIB (RAF KINASE INHIBITOR) [Suspect]
     Active Substance: SORAFENIB
     Indication: HEPATOCELLULAR CARCINOMA
     Dosage: 200 MG, BID
     Dates: start: 201505

REACTIONS (4)
  - Oesophageal candidiasis [Recovered/Resolved]
  - Palmar-plantar erythrodysaesthesia syndrome [None]
  - Gastric ulcer [Recovered/Resolved]
  - Oesophageal ulcer [Recovered/Resolved]
